FAERS Safety Report 25406201 (Version 1)
Quarter: 2025Q2

REPORT INFORMATION
  Report Type: Spontaneous
  Country: US (occurrence: None)
  Receive Date: 20250606
  Receipt Date: 20250606
  Transmission Date: 20250717
  Serious: No
  Sender: FDA-CTU
  Company Number: None

PATIENT
  Age: 67 Year
  Sex: Female
  Weight: 29.94 kg

DRUGS (3)
  1. ENBREL [Suspect]
     Active Substance: ETANERCEPT
     Indication: Rheumatoid arthritis
     Dosage: FREQUENCY : WEEKLY;?
     Route: 058
     Dates: start: 202411
  2. ENBREL [Suspect]
     Active Substance: ETANERCEPT
     Indication: Rheumatoid factor positive
  3. ENBREL [Suspect]
     Active Substance: ETANERCEPT
     Indication: Polyarthritis

REACTIONS (2)
  - COVID-19 [None]
  - Therapy interrupted [None]
